FAERS Safety Report 7396018-X (Version None)
Quarter: 2011Q2

REPORT INFORMATION
  Report Type: 
  Country: None (occurrence: None)
  Receive Date: 20110406
  Receipt Date: 20110328
  Transmission Date: 20111010
  Serious: Yes (Hospitalization, Other)
  Sender: FDA-Public Use
  Company Number: US-ELI_LILLY_AND_COMPANY-US201102000940

PATIENT
  Sex: Female

DRUGS (3)
  1. LANTUS [Concomitant]
  2. ADVAIR DISKUS 100/50 [Concomitant]
  3. HUMALOG [Suspect]
     Indication: DIABETES MELLITUS
     Dosage: 5 U, 3/D

REACTIONS (6)
  - COUGH [None]
  - ASTHMA [None]
  - CONVULSION [None]
  - WHEEZING [None]
  - MALAISE [None]
  - DYSSTASIA [None]
